FAERS Safety Report 23601254 (Version 1)
Quarter: 2024Q1

REPORT INFORMATION
  Report Type: Other
  Country: FR (occurrence: FR)
  Receive Date: 20240306
  Receipt Date: 20240306
  Transmission Date: 20240410
  Serious: Yes (Hospitalization)
  Sender: FDA-Public Use
  Company Number: None

PATIENT
  Age: 35 Year
  Sex: Male
  Weight: 68 kg

DRUGS (6)
  1. ALPRAZOLAM [Suspect]
     Active Substance: ALPRAZOLAM
     Indication: Toxicity to various agents
     Dosage: 94 MILLIGRAM
     Route: 048
     Dates: start: 20231230, end: 20231230
  2. CODEINE [Suspect]
     Active Substance: CODEINE
     Indication: Toxicity to various agents
     Dosage: 90 MILLIGRAM
     Route: 048
     Dates: start: 20231230, end: 20231230
  3. ESOMEPRAZOLE [Suspect]
     Active Substance: ESOMEPRAZOLE
     Indication: Toxicity to various agents
     Dosage: 40 MILLIGRAM
     Route: 048
     Dates: start: 20231230, end: 20231230
  4. ACETAMINOPHEN [Suspect]
     Active Substance: ACETAMINOPHEN
     Indication: Toxicity to various agents
     Dosage: 3 GRAM
     Route: 048
     Dates: start: 20231230, end: 20231230
  5. ACETAMINOPHEN\TRAMADOL [Suspect]
     Active Substance: ACETAMINOPHEN\TRAMADOL
     Indication: Toxicity to various agents
     Dosage: 975 MILLIGRAM
     Route: 048
     Dates: start: 20231230, end: 20231230
  6. IBUPROFEN LYSINE [Suspect]
     Active Substance: IBUPROFEN LYSINE
     Indication: Toxicity to various agents
     Dosage: 90 MILLIGRAM (1 CP  DE200 MG OU 400 MG?)
     Route: 048
     Dates: start: 20231230, end: 20231230

REACTIONS (3)
  - Poisoning deliberate [Recovered/Resolved]
  - Gait disturbance [Recovered/Resolved]
  - Somnolence [Recovered/Resolved]

NARRATIVE: CASE EVENT DATE: 20231230
